FAERS Safety Report 4356664-4 (Version None)
Quarter: 2004Q2

REPORT INFORMATION
  Report Type: 
  Country: None (occurrence: None)
  Receive Date: 20040511
  Receipt Date: 20040511
  Transmission Date: 20050107
  Serious: Yes (Disabling)
  Sender: FDA-Public Use
  Company Number: None

PATIENT
  Age: 58 Year
  Sex: Female
  Weight: 58.9676 kg

DRUGS (2)
  1. ZICAM NASAL GEL [Suspect]
     Indication: NASOPHARYNGITIS
     Dosage: ONE SPRAY INTO EACH NOSTRIL
     Route: 045
     Dates: start: 20040302, end: 20040303
  2. ZICAM NASAL GEL [Suspect]
     Indication: PROPHYLAXIS
     Dosage: ONE SPRAY INTO EACH NOSTRIL
     Route: 045
     Dates: start: 20040302, end: 20040303

REACTIONS (6)
  - AGEUSIA [None]
  - ANGER [None]
  - ANOSMIA [None]
  - BURNING SENSATION [None]
  - DEPRESSED MOOD [None]
  - NASAL DISCOMFORT [None]
